FAERS Safety Report 13384086 (Version 1)
Quarter: 2017Q1

REPORT INFORMATION
  Report Type: Spontaneous
  Country: US (occurrence: US)
  Receive Date: 20170329
  Receipt Date: 20170329
  Transmission Date: 20170429
  Serious: Yes (Hospitalization, Other)
  Sender: FDA-Public Use
  Company Number: US-UCBSA-2017011496

PATIENT
  Sex: Male
  Weight: 94 kg

DRUGS (2)
  1. KEPPRA [Suspect]
     Active Substance: LEVETIRACETAM
     Indication: SEIZURE
     Dosage: UNK
     Route: 048
     Dates: start: 20150824
  2. LAMICTAL [Suspect]
     Active Substance: LAMOTRIGINE
     Indication: SEIZURE
     Dosage: 100 MG, UNK
     Route: 048
     Dates: start: 20140519

REACTIONS (11)
  - Ageusia [Not Recovered/Not Resolved]
  - Anosmia [Not Recovered/Not Resolved]
  - Disorientation [Unknown]
  - Status epilepticus [Unknown]
  - Drug ineffective [Unknown]
  - Somnolence [Unknown]
  - Generalised tonic-clonic seizure [Recovered/Resolved]
  - Myocardial infarction [Recovered/Resolved]
  - Seizure [Unknown]
  - Loss of consciousness [Unknown]
  - Weight decreased [Unknown]
